FAERS Safety Report 24766317 (Version 3)
Quarter: 2025Q1

REPORT INFORMATION
  Report Type: Spontaneous
  Country: US (occurrence: US)
  Receive Date: 20241223
  Receipt Date: 20250107
  Transmission Date: 20250409
  Serious: Yes (Hospitalization)
  Sender: PFIZER
  Company Number: US-PFIZER INC-202400328135

PATIENT
  Age: 77 Year
  Sex: Male

DRUGS (1)
  1. IBRANCE [Suspect]
     Active Substance: PALBOCICLIB
     Indication: Liposarcoma metastatic
     Route: 048

REACTIONS (14)
  - Pain [Unknown]
  - Decreased appetite [Unknown]
  - Constipation [Unknown]
  - Off label use [Unknown]
  - Depression [Unknown]
  - Oropharyngeal pain [Unknown]
  - Apathy [Unknown]
  - Weight decreased [Unknown]
  - Memory impairment [Unknown]
  - Limb discomfort [Unknown]
  - Mobility decreased [Unknown]
  - Urinary tract disorder [Unknown]
  - Gastrointestinal disorder [Not Recovered/Not Resolved]
  - Memory impairment [Unknown]

NARRATIVE: CASE EVENT DATE: 20240101
